FAERS Safety Report 4927691-0 (Version None)
Quarter: 2006Q1

REPORT INFORMATION
  Report Type: 
  Country: None (occurrence: None)
  Receive Date: 20060228
  Receipt Date: 20051028
  Transmission Date: 20060701
  Serious: Yes (Hospitalization)
  Sender: FDA-Public Use
  Company Number: US-MERCK-0510USA09952

PATIENT
  Age: 60 Year
  Sex: Male
  Weight: 73 kg

DRUGS (4)
  1. VIOXX [Suspect]
     Route: 048
     Dates: start: 20011101, end: 20040901
  2. HYDROCODONE BITARTRATE + ACETAMINOPHEN [Concomitant]
     Route: 048
  3. OXACILLIN SODIUM [Concomitant]
     Route: 041
  4. RIFAMPIN [Concomitant]
     Route: 048

REACTIONS (5)
  - ACUTE MYOCARDIAL INFARCTION [None]
  - ATRIOVENTRICULAR BLOCK FIRST DEGREE [None]
  - CORONARY ARTERY DISEASE [None]
  - EJECTION FRACTION DECREASED [None]
  - PROCEDURAL COMPLICATION [None]
